FAERS Safety Report 14074809 (Version 1)
Quarter: 2017Q4

REPORT INFORMATION
  Report Type: Spontaneous
  Country: US (occurrence: US)
  Receive Date: 20171010
  Receipt Date: 20171010
  Transmission Date: 20180321
  Serious: Yes (Hospitalization)
  Sender: FDA-Public Use
  Company Number: US-MYLANLABS-2017M1063142

PATIENT
  Age: 17 Month
  Sex: Male

DRUGS (2)
  1. PHENYTOIN. [Suspect]
     Active Substance: PHENYTOIN
     Indication: SEIZURE
     Route: 048
  2. PREDNISONE. [Concomitant]
     Active Substance: PREDNISONE
     Indication: PRODUCT USED FOR UNKNOWN INDICATION
     Dosage: 6MG DAILY FOR 6 DAYS
     Route: 048

REACTIONS (3)
  - Toxic epidermal necrolysis [Recovered/Resolved]
  - Respiratory distress [Unknown]
  - Stevens-Johnson syndrome [Recovered/Resolved]
